FAERS Safety Report 24955668 (Version 7)
Quarter: 2025Q2

REPORT INFORMATION
  Report Type: Report from Study
  Country: US (occurrence: US)
  Receive Date: 20250211
  Receipt Date: 20250611
  Transmission Date: 20250716
  Serious: Yes (Hospitalization, Other)
  Sender: UCB
  Company Number: US-UCBSA-2024061712

PATIENT
  Sex: Male

DRUGS (16)
  1. FINTEPLA [Suspect]
     Active Substance: FENFLURAMINE
     Indication: Lennox-Gastaut syndrome
     Dosage: 5.8 MILLILITER, 2X/DAY (BID)
     Dates: start: 20240824, end: 2024
  2. FINTEPLA [Suspect]
     Active Substance: FENFLURAMINE
     Indication: Seizure
     Dosage: 5 MILLILITER, 2X/DAY (BID)
     Dates: start: 2024
  3. FINTEPLA [Suspect]
     Active Substance: FENFLURAMINE
     Dates: start: 20240904
  4. FINTEPLA [Suspect]
     Active Substance: FENFLURAMINE
     Route: 048
     Dates: start: 20241126
  5. FINTEPLA [Suspect]
     Active Substance: FENFLURAMINE
     Dosage: 5 MILLILITER, 2X/DAY (BID)
  6. FINTEPLA [Suspect]
     Active Substance: FENFLURAMINE
     Dosage: 5 MILLILITER, 2X/DAY (BID)
  7. FINTEPLA [Suspect]
     Active Substance: FENFLURAMINE
     Dosage: 5 MILLILITER, 2X/DAY (BID)
  8. NAYZILAM [Suspect]
     Active Substance: MIDAZOLAM
     Indication: Seizure
     Route: 045
     Dates: start: 20240930
  9. DEPAKOTE [Concomitant]
     Active Substance: DIVALPROEX SODIUM
     Indication: Product used for unknown indication
  10. BANZEL [Concomitant]
     Active Substance: RUFINAMIDE
     Indication: Product used for unknown indication
  11. BANZEL [Concomitant]
     Active Substance: RUFINAMIDE
     Route: 048
     Dates: start: 20241004
  12. EPIDIOLEX [Concomitant]
     Active Substance: CANNABIDIOL
     Indication: Product used for unknown indication
     Dates: end: 2024
  13. EPIDIOLEX [Concomitant]
     Active Substance: CANNABIDIOL
     Dosage: 5 MILLILITER, 2X/DAY (BID)
     Route: 048
     Dates: start: 20241024
  14. CLONIDINE HYDROCHLORIDE [Concomitant]
     Active Substance: CLONIDINE HYDROCHLORIDE
     Indication: Product used for unknown indication
     Dates: start: 20241119
  15. BENZTROPINE [Concomitant]
     Active Substance: BENZTROPINE
     Indication: Dystonia
     Dosage: 1 MILLIGRAM, 2X/DAY (BID)
     Route: 048
     Dates: start: 20240827
  16. VALPROIC ACID [Concomitant]
     Active Substance: VALPROIC ACID
     Indication: Product used for unknown indication
     Dosage: 15 MILLILITER, 3X/DAY (TID)
     Route: 048
     Dates: start: 20240309

REACTIONS (15)
  - Hyperkalaemia [Recovered/Resolved]
  - Seizure [Not Recovered/Not Resolved]
  - Medical device battery replacement [Recovered/Resolved]
  - Encephalopathy [Unknown]
  - Nausea [Recovered/Resolved]
  - Agitation [Not Recovered/Not Resolved]
  - Behaviour disorder [Not Recovered/Not Resolved]
  - Gastrointestinal disorder [Not Recovered/Not Resolved]
  - Atonic seizures [Recovered/Resolved]
  - Sleep disorder [Unknown]
  - Feeling abnormal [Unknown]
  - Akathisia [Unknown]
  - Dyskinesia [Unknown]
  - Weight decreased [Not Recovered/Not Resolved]
  - Illness [Unknown]

NARRATIVE: CASE EVENT DATE: 20240101
